FAERS Safety Report 6643279-8 (Version None)
Quarter: 2010Q1

REPORT INFORMATION
  Report Type: 
  Country: None (occurrence: None)
  Receive Date: 20100319
  Receipt Date: 20100312
  Transmission Date: 20100710
  Serious: Yes (Other)
  Sender: FDA-Public Use
  Company Number: AU-GENENTECH-299248

PATIENT
  Sex: Male

DRUGS (1)
  1. RITUXIMAB [Suspect]
     Indication: DRUG USE FOR UNKNOWN INDICATION
     Dosage: 700 MG, UNK
     Route: 042
     Dates: start: 20100204, end: 20100204

REACTIONS (4)
  - DYSPHONIA [None]
  - ERYTHEMA [None]
  - HYPOAESTHESIA [None]
  - LIP SWELLING [None]
